FAERS Safety Report 7799868-0 (Version None)
Quarter: 2011Q4

REPORT INFORMATION
  Report Type: 
  Country: None (occurrence: None)
  Receive Date: 20111004
  Receipt Date: 20110919
  Transmission Date: 20120403
  Serious: Yes (Hospitalization, Other)
  Sender: FDA-Public Use
  Company Number: 2011SP044566

PATIENT
  Sex: Male

DRUGS (2)
  1. RIBAVIRIN [Suspect]
     Indication: HEPATITIS C
     Dates: start: 20020101
  2. INTERFERON [Suspect]
     Indication: HEPATITIS C
     Dosage: TIW
     Dates: start: 20020101

REACTIONS (4)
  - CEREBROVASCULAR ACCIDENT [None]
  - VIRAL LOAD INCREASED [None]
  - DRUG INEFFECTIVE [None]
  - THROMBOSIS [None]
